FAERS Safety Report 5158461-9 (Version None)
Quarter: 2006Q4

REPORT INFORMATION
  Report Type: 
  Country: None (occurrence: None)
  Receive Date: 20061128
  Receipt Date: 20060509
  Transmission Date: 20070319
  Serious: Yes (Hospitalization)
  Sender: FDA-Public Use
  Company Number: PHNU2006DE01909

PATIENT
  Age: 50 Year
  Sex: Male

DRUGS (4)
  1. CELLCEPT [Concomitant]
     Dosage: 1000MG/DAY
  2. ACETYLSALICYLIC ACID SRT [Concomitant]
     Dosage: 100MG/DAY
     Route: 048
  3. SANDIMMUNE [Suspect]
     Indication: RENAL AND PANCREAS TRANSPLANT
     Dosage: 100 MG, BID
     Route: 048
     Dates: start: 19970101
  4. CIPRO [Concomitant]

REACTIONS (4)
  - BLADDER OPERATION [None]
  - CYSTITIS NONINFECTIVE [None]
  - URINARY INCONTINENCE [None]
  - URINARY TRACT INFECTION [None]
